FAERS Safety Report 18722913 (Version 1)
Quarter: 2021Q1

REPORT INFORMATION
  Report Type: Spontaneous
  Country: NL (occurrence: NL)
  Receive Date: 20210111
  Receipt Date: 20210111
  Transmission Date: 20210419
  Serious: Yes (Disabling)
  Sender: FDA-Public Use
  Company Number: NL-TEVA-2021-NL-1866205

PATIENT
  Sex: Male
  Weight: 82 kg

DRUGS (6)
  1. TELMISARTAN TABLET 80MG / BRAND NAME NOT SPECIFIED [Suspect]
     Active Substance: TELMISARTAN
     Indication: CEREBROVASCULAR ACCIDENT
  2. BISOPROLOL TABLET   2,5MG / BRAND NAME NOT SPECIFIED [Concomitant]
     Dosage: 2.5 MG, THERAPY START DATE AND END DATE : ASKU
  3. NIFEDIPINE TABLET MGA 60MG / BRAND NAME NOT SPECIFIED [Suspect]
     Active Substance: NIFEDIPINE
     Indication: MYOCARDIAL INFARCTION
  4. TELMISARTAN TABLET 80MG / BRAND NAME NOT SPECIFIED [Suspect]
     Active Substance: TELMISARTAN
     Indication: MYOCARDIAL INFARCTION
     Dosage: 1 DOSAGE FORMS DAILY; THERAPY END DATE : ASKU, MEDICINE PRESCRIBED BY DOCTOR: YES
     Dates: start: 2009
  5. CARBASALAATCALCIUM POEDER 100MG / BRAND NAME NOT SPECIFIED [Concomitant]
     Dosage: THERAPY START DATE AND END DATE : ASKU
  6. NIFEDIPINE TABLET MGA 60MG / BRAND NAME NOT SPECIFIED [Suspect]
     Active Substance: NIFEDIPINE
     Indication: CEREBROVASCULAR ACCIDENT
     Dosage: 60 MILLIGRAM DAILY; 1 PIECE,  THERAPY END DATE : ASKU, MEDICINE PRESCRIBED BY DOCTOR: YES
     Dates: start: 2009

REACTIONS (5)
  - Pruritus [Not Recovered/Not Resolved]
  - Haematoma [Unknown]
  - Rash [Not Recovered/Not Resolved]
  - Gout [Unknown]
  - Therapeutic response unexpected [Unknown]
